FAERS Safety Report 20818654 (Version 1)
Quarter: 2022Q2

REPORT INFORMATION
  Report Type: Spontaneous
  Country: US (occurrence: US)
  Receive Date: 20220512
  Receipt Date: 20220512
  Transmission Date: 20220720
  Serious: Yes (Other)
  Sender: FDA-Public Use
  Company Number: US-BRISTOL-MYERS SQUIBB COMPANY-2022-032196

PATIENT
  Age: 70 Year
  Sex: Female
  Weight: 84.37 kg

DRUGS (1)
  1. POMALYST [Suspect]
     Active Substance: POMALIDOMIDE
     Indication: Intraductal papilloma of breast
     Dosage: DAILY 21D ON 7D ?OFF
     Route: 048

REACTIONS (2)
  - Neoplasm [Unknown]
  - Off label use [Unknown]
